FAERS Safety Report 10195399 (Version 2)
Quarter: 2014Q2

REPORT INFORMATION
  Report Type: Report from Study
  Country: AU (occurrence: AU)
  Receive Date: 20140526
  Receipt Date: 20140607
  Transmission Date: 20141212
  Serious: Yes (Death)
  Sender: FDA-Public Use
  Company Number: PHHY2014AU063228

PATIENT
  Sex: Male

DRUGS (1)
  1. CLOZARIL [Suspect]
     Dosage: 525 MG
     Dates: start: 20100702, end: 201405

REACTIONS (2)
  - Completed suicide [Fatal]
  - Drug ineffective [Unknown]
